FAERS Safety Report 24450547 (Version 1)
Quarter: 2024Q4

REPORT INFORMATION
  Report Type: Spontaneous
  Country: UA (occurrence: UA)
  Receive Date: 20241017
  Receipt Date: 20241017
  Transmission Date: 20250115
  Serious: Yes (Other)
  Sender: MERCK
  Company Number: UA-009507513-2410USA005086

PATIENT
  Sex: Male

DRUGS (6)
  1. PEMBROLIZUMAB [Suspect]
     Active Substance: PEMBROLIZUMAB
     Indication: Clear cell renal cell carcinoma
     Dosage: UNK
     Dates: start: 202310
  2. PEMBROLIZUMAB [Suspect]
     Active Substance: PEMBROLIZUMAB
     Indication: Rhabdoid tumour of the kidney
  3. BELZUTIFAN [Suspect]
     Active Substance: BELZUTIFAN
     Indication: Clear cell renal cell carcinoma
     Dosage: UNK
     Route: 048
  4. BELZUTIFAN [Suspect]
     Active Substance: BELZUTIFAN
     Indication: Rhabdoid tumour of the kidney
  5. AXITINIB [Suspect]
     Active Substance: AXITINIB
     Indication: Clear cell renal cell carcinoma
     Dosage: UNK
     Dates: start: 202310
  6. AXITINIB [Suspect]
     Active Substance: AXITINIB
     Indication: Rhabdoid tumour of the kidney

REACTIONS (18)
  - Malignant neoplasm progression [Unknown]
  - Autoimmune colitis [Unknown]
  - Aortic aneurysm thrombosis [Unknown]
  - Aortic arteriosclerosis [Unknown]
  - General physical health deterioration [Unknown]
  - Abdominal pain [Unknown]
  - Asthenia [Unknown]
  - Fatigue [Unknown]
  - Constipation [Unknown]
  - Haemoptysis [Unknown]
  - Cough [Unknown]
  - Gastrooesophageal reflux disease [Unknown]
  - Chronic gastritis [Unknown]
  - Surgery [Unknown]
  - Prostatic mass [Unknown]
  - Aortic aneurysm [Unknown]
  - Spinal osteoarthritis [Unknown]
  - Inability to afford medication [Unknown]

NARRATIVE: CASE EVENT DATE: 20240101
